FAERS Safety Report 12187339 (Version 9)
Quarter: 2016Q4

REPORT INFORMATION
  Report Type: Report from Study
  Country: US (occurrence: US)
  Receive Date: 20160317
  Receipt Date: 20161031
  Transmission Date: 20170207
  Serious: Yes (Death, Hospitalization, Other)
  Sender: FDA-Public Use
  Company Number: US-BAYER-2016-044287

PATIENT
  Age: 70 Year
  Sex: Female
  Weight: 102.49 kg

DRUGS (6)
  1. PERCOCET [OXYCODONE HYDROCHLORIDE,OXYCODONE TEREPHTHALATE,PARACETA [Concomitant]
  2. ADEMPAS [Suspect]
     Active Substance: RIOCIGUAT
     Indication: PULMONARY ARTERIAL HYPERTENSION
     Dosage: 2 MG, TID
     Route: 048
  3. REMODULIN [Suspect]
     Active Substance: TREPROSTINIL
  4. ADEMPAS [Suspect]
     Active Substance: RIOCIGUAT
     Indication: PULMONARY ARTERIAL HYPERTENSION
     Dosage: UNK
     Dates: start: 20141020
  5. ADEMPAS [Suspect]
     Active Substance: RIOCIGUAT
     Indication: PULMONARY ARTERIAL HYPERTENSION
     Dosage: 2 MG, TID
     Route: 048
  6. ADEMPAS [Suspect]
     Active Substance: RIOCIGUAT
     Indication: PULMONARY ARTERIAL HYPERTENSION
     Dosage: 2 MG, TID
     Route: 048

REACTIONS (12)
  - Back pain [Unknown]
  - Infection [None]
  - Chest pain [Unknown]
  - Clostridium difficile infection [None]
  - Accidental exposure to product [None]
  - Death [Fatal]
  - Back disorder [None]
  - Oxygen saturation decreased [None]
  - Viral infection [None]
  - Oxygen saturation decreased [None]
  - Clostridium difficile colitis [Unknown]
  - Back pain [Unknown]

NARRATIVE: CASE EVENT DATE: 201603
